FAERS Safety Report 6816250-0 (Version None)
Quarter: 2010Q3

REPORT INFORMATION
  Report Type: 
  Country: None (occurrence: None)
  Receive Date: 20100702
  Receipt Date: 20100702
  Transmission Date: 20110219
  Serious: Yes (Hospitalization)
  Sender: FDA-Public Use
  Company Number: None

PATIENT
  Sex: Female
  Weight: 90.2658 kg

DRUGS (1)
  1. LEVOTHYROXINE SODIUM [Suspect]

REACTIONS (16)
  - ARTHRALGIA [None]
  - BACTERIAL INFECTION [None]
  - CARDIAC DISORDER [None]
  - DEPRESSION [None]
  - DRUG INTOLERANCE [None]
  - DRY MOUTH [None]
  - DYSPNOEA [None]
  - ERYTHEMA [None]
  - FATIGUE [None]
  - GAIT DISTURBANCE [None]
  - IMMUNE SYSTEM DISORDER [None]
  - MALAISE [None]
  - QUALITY OF LIFE DECREASED [None]
  - RASH [None]
  - SUICIDAL IDEATION [None]
  - WEIGHT DECREASED [None]
